FAERS Safety Report 24014198 (Version 1)
Quarter: 2024Q2

REPORT INFORMATION
  Report Type: Spontaneous
  Country: JP (occurrence: JP)
  Receive Date: 20240626
  Receipt Date: 20240626
  Transmission Date: 20240716
  Serious: Yes (Other)
  Sender: FDA-Public Use
  Company Number: JP-CHUGAI-2024017774

PATIENT
  Age: 72 Year
  Sex: Male
  Weight: 56.4 kg

DRUGS (2)
  1. VABYSMO [Suspect]
     Active Substance: FARICIMAB\FARICIMAB-SVOA
     Indication: Age-related macular degeneration
     Dosage: 6 MILLIGRAM, RIGHT EYE
     Route: 050
     Dates: start: 20230714, end: 20230724
  2. EYLEA [Suspect]
     Active Substance: AFLIBERCEPT
     Indication: Age-related macular degeneration
     Dosage: UNK
     Route: 065
     Dates: start: 20231016, end: 20231113

REACTIONS (3)
  - Hypersensitivity [Unknown]
  - Vitreous opacities [Unknown]
  - Cerebral infarction [Unknown]

NARRATIVE: CASE EVENT DATE: 20231117
